FAERS Safety Report 7757164-1 (Version None)
Quarter: 2011Q3

REPORT INFORMATION
  Report Type: 
  Country: None (occurrence: None)
  Receive Date: 20110916
  Receipt Date: 20110909
  Transmission Date: 20111222
  Serious: Yes (Life-Threatening, Hospitalization)
  Sender: FDA-Public Use
  Company Number: CH-JNJFOC-20110812898

PATIENT
  Sex: Female
  Weight: 72 kg

DRUGS (23)
  1. TRAMADOL HCL [Suspect]
     Indication: PRODUCT USED FOR UNKNOWN INDICATION
     Dosage: 10 X 100 MG
     Route: 048
     Dates: start: 20091231, end: 20091231
  2. ACETAMINOPHEN [Suspect]
     Indication: PRODUCT USED FOR UNKNOWN INDICATION
     Dosage: 1 G 4 TIMES A DAY (1-1-1-1)
     Route: 048
  3. IRBESARTAN AND HYDROCHLOROTHIAZIDE [Suspect]
     Indication: PRODUCT USED FOR UNKNOWN INDICATION
     Dosage: 2 X 150/12.5
     Route: 065
     Dates: start: 20091231, end: 20091231
  4. ATORVASTATIN [Suspect]
     Indication: PRODUCT USED FOR UNKNOWN INDICATION
     Dosage: 2 X 20 MG
     Route: 065
     Dates: start: 20091231, end: 20091231
  5. ESCITALOPRAM [Suspect]
     Dosage: 20 MG (1-0-0-0)
     Route: 065
  6. OXYCONTIN [Suspect]
     Indication: PRODUCT USED FOR UNKNOWN INDICATION
     Dosage: 10 MG (1-0-0-2)
     Route: 065
  7. MOTILIUM [Suspect]
     Dosage: 10 MG THREE TIMES A DAY (1-1-1-0)
     Route: 065
  8. LEVOTHYROXINE SODIUM [Suspect]
     Dosage: 2 X 0.1 MG
     Route: 065
     Dates: start: 20091231, end: 20091231
  9. REMERON [Suspect]
     Dosage: 2 X 15 MG
     Route: 065
     Dates: start: 20091231, end: 20091231
  10. XARELTO [Concomitant]
     Indication: PRODUCT USED FOR UNKNOWN INDICATION
     Dosage: 10 X 10 MG
     Route: 048
     Dates: start: 20091231, end: 20091231
  11. NIFTEN [Suspect]
     Indication: PRODUCT USED FOR UNKNOWN INDICATION
     Dosage: 50/25 ONCE A DAY (1-0-0-0)
     Route: 065
  12. ATORVASTATIN [Suspect]
     Dosage: 20 MG ONCE A DAY (0-0-1-0)
     Route: 065
  13. LEVOTHYROXINE SODIUM [Suspect]
     Indication: PRODUCT USED FOR UNKNOWN INDICATION
     Dosage: 0.1 MG ONCE A DAY (1-0-0-0)
     Route: 065
  14. OXYCONTIN [Suspect]
     Dosage: 2 * 30 MG
     Route: 065
     Dates: start: 20091231, end: 20091231
  15. MOTILIUM [Suspect]
     Indication: PRODUCT USED FOR UNKNOWN INDICATION
     Dosage: 6 X 10 MG
     Route: 065
     Dates: start: 20091231, end: 20091231
  16. NIFTEN [Suspect]
     Dosage: 2 X 50/25
     Route: 065
     Dates: start: 20091231, end: 20091231
  17. CALCIMAGON-D 3 [Suspect]
     Indication: PRODUCT USED FOR UNKNOWN INDICATION
     Dosage: 4 DOSES AT A TIME
     Route: 065
     Dates: start: 20091231, end: 20091231
  18. CALCIMAGON-D 3 [Suspect]
     Dosage: TWICE A DAY (1-1-0-0)
     Route: 065
  19. REMERON [Suspect]
     Indication: PRODUCT USED FOR UNKNOWN INDICATION
     Dosage: 15 MG ONCE A DAY (0-0-0-1)
     Route: 065
  20. XARELTO [Concomitant]
     Dosage: 10 MG ONCE A DAY (0-0-1-0)
     Route: 048
  21. ACETAMINOPHEN [Suspect]
     Dosage: 32 G
     Route: 048
     Dates: start: 20091231, end: 20091231
  22. IRBESARTAN AND HYDROCHLOROTHIAZIDE [Suspect]
     Dosage: 150/12.5 1/2 PER DAY (1/2-0-0-0)
     Route: 065
  23. ESCITALOPRAM [Suspect]
     Indication: PRODUCT USED FOR UNKNOWN INDICATION
     Dosage: 2 X 20 MG
     Route: 065
     Dates: start: 20091231, end: 20091231

REACTIONS (3)
  - MULTIPLE DRUG OVERDOSE INTENTIONAL [None]
  - TOXICITY TO VARIOUS AGENTS [None]
  - SUICIDE ATTEMPT [None]
